FAERS Safety Report 7593625-6 (Version None)
Quarter: 2011Q2

REPORT INFORMATION
  Report Type: 
  Country: None (occurrence: None)
  Receive Date: 20110628
  Receipt Date: 20110620
  Transmission Date: 20111010
  Serious: Yes (Life-Threatening, Hospitalization)
  Sender: FDA-Public Use
  Company Number: TCI2011A03514

PATIENT
  Age: 72 Year
  Sex: Male

DRUGS (3)
  1. ACTOS [Suspect]
     Indication: DIABETES MELLITUS
     Dosage: 15 MG (15 MG, 1 IN 1 D) PER ORAL
     Route: 048
     Dates: start: 20070709, end: 20110613
  2. NELBIS (METFORMIN HYDROCHLORIDE) [Concomitant]
  3. AMARYL [Concomitant]

REACTIONS (1)
  - BLADDER CANCER [None]
